FAERS Safety Report 4752370-2 (Version None)
Quarter: 2005Q3

REPORT INFORMATION
  Report Type: 
  Country: None (occurrence: None)
  Receive Date: 20050825
  Receipt Date: 20050815
  Transmission Date: 20060218
  Serious: Yes (Other)
  Sender: FDA-Public Use
  Company Number: JP-JNJFOC-20050803667

PATIENT
  Sex: Male

DRUGS (6)
  1. ITRIZOLE [Suspect]
     Indication: ONYCHOMYCOSIS
     Route: 048
     Dates: start: 20050627, end: 20050701
  2. BUTENAFINE HYDROCHLORIDE [Concomitant]
     Indication: TINEA PEDIS
     Route: 061
     Dates: start: 20000518
  3. TOCOPHEROL ACETATE [Concomitant]
     Indication: PERIPHERAL CIRCULATORY FAILURE
     Route: 048
     Dates: start: 20010206
  4. GILBENCLAMIDE [Concomitant]
     Indication: DIABETES MELLITUS
     Route: 048
  5. METFORMIN HCL [Concomitant]
     Indication: DIABETES MELLITUS
     Route: 048
  6. ACARBOSE [Concomitant]
     Indication: DIABETES MELLITUS
     Route: 048

REACTIONS (3)
  - CEREBRAL INFARCTION [None]
  - EMBOLISM [None]
  - THROMBOSIS [None]
